FAERS Safety Report 10026186 (Version 1)
Quarter: 2014Q1

REPORT INFORMATION
  Report Type: Spontaneous
  Country: None (occurrence: US)
  Receive Date: 20140320
  Receipt Date: 20140320
  Transmission Date: 20141002
  Serious: No
  Sender: FDA-Public Use
  Company Number: US-ALLERGAN-1316441US

PATIENT
  Age: 27 Year
  Sex: Female

DRUGS (1)
  1. LUMIGAN 0.01% [Suspect]
     Indication: GLAUCOMA
     Dosage: 2 GTT, QHS
     Route: 047
     Dates: start: 20131016

REACTIONS (3)
  - Foreign body sensation in eyes [Unknown]
  - Instillation site pain [Not Recovered/Not Resolved]
  - Ocular hyperaemia [Unknown]
